FAERS Safety Report 11170683 (Version 1)
Quarter: 2015Q2

REPORT INFORMATION
  Report Type: Spontaneous
  Country: US (occurrence: US)
  Receive Date: 20150608
  Receipt Date: 20150608
  Transmission Date: 20150821
  Serious: Yes (Other)
  Sender: FDA-Public Use
  Company Number: US-JNJFOC-20150520201

PATIENT
  Age: 53 Year
  Sex: Female

DRUGS (8)
  1. ATIVAN [Concomitant]
     Active Substance: LORAZEPAM
     Route: 065
  2. BENADRYL [Concomitant]
     Active Substance: DIPHENHYDRAMINE HYDROCHLORIDE
     Route: 065
  3. PERCOCET [Concomitant]
     Active Substance: ACETAMINOPHEN\OXYCODONE HYDROCHLORIDE
     Route: 065
  4. BOTOX [Suspect]
     Active Substance: ONABOTULINUMTOXINA
     Indication: PAIN IN EXTREMITY
     Route: 030
     Dates: start: 20141215
  5. MORPHINE [Concomitant]
     Active Substance: MORPHINE
     Route: 065
  6. FENTANYL. [Suspect]
     Active Substance: FENTANYL
     Indication: PAIN
     Route: 065
  7. BOTOX [Suspect]
     Active Substance: ONABOTULINUMTOXINA
     Indication: BACK PAIN
     Route: 030
     Dates: start: 20141215
  8. BOTOX [Suspect]
     Active Substance: ONABOTULINUMTOXINA
     Indication: MUSCLE TIGHTNESS
     Route: 030
     Dates: start: 20141215

REACTIONS (20)
  - Suicidal ideation [Unknown]
  - Diarrhoea [Unknown]
  - Urticaria [Unknown]
  - Sensation of foreign body [Unknown]
  - Dyspnoea [Unknown]
  - Bladder pain [Unknown]
  - Hyperhidrosis [Unknown]
  - Palpitations [Unknown]
  - Local swelling [Recovering/Resolving]
  - Feeling cold [Recovered/Resolved]
  - Parosmia [Unknown]
  - Throat irritation [Unknown]
  - Hypersensitivity [Unknown]
  - Headache [Unknown]
  - Pain [Recovering/Resolving]
  - Feeling abnormal [Unknown]
  - Pelvic floor muscle weakness [Unknown]
  - Blood pressure systolic increased [Unknown]
  - Abnormal faeces [Unknown]
  - Unevaluable event [Unknown]
